FAERS Safety Report 9802884 (Version 1)
Quarter: 2014Q1

REPORT INFORMATION
  Report Type: Spontaneous
  Country: US (occurrence: None)
  Receive Date: 20140106
  Receipt Date: 20140106
  Transmission Date: 20141002
  Serious: Yes (Disabling)
  Sender: FDA-Public Use
  Company Number: None

PATIENT
  Age: 45 Year
  Sex: Female
  Weight: 60.33 kg

DRUGS (1)
  1. CIPROFLAXIN [Suspect]
     Indication: URINARY TRACT INFECTION
     Dosage: 1 PILL TWICE DAILY  TAKEN BY MOUTH
     Route: 048
     Dates: start: 20130708, end: 20130715

REACTIONS (1)
  - Tendon rupture [None]
